FAERS Safety Report 13268392 (Version 5)
Quarter: 2018Q1

REPORT INFORMATION
  Report Type: Spontaneous
  Country: JP (occurrence: JP)
  Receive Date: 20170224
  Receipt Date: 20180102
  Transmission Date: 20180508
  Serious: Yes (Other)
  Sender: FDA-Public Use
  Company Number: JP-OTSUKA-2017_004490

PATIENT
  Age: 12 Year
  Sex: Female

DRUGS (13)
  1. CLOFARABINE. [Concomitant]
     Active Substance: CLOFARABINE
     Indication: STEM CELL TRANSPLANT
     Dosage: 40 MG/M2, UNK
     Route: 042
  2. URSODEOXYCHOLIC ACID [Concomitant]
     Active Substance: URSODIOL
     Indication: HEPATIC VEIN OCCLUSION
     Dosage: UNK
     Route: 065
  3. ARTIST [Concomitant]
     Active Substance: CARVEDILOL
     Indication: PRODUCT USED FOR UNKNOWN INDICATION
     Dosage: 5 MG, DAILY DOSE
     Route: 065
  4. URSO [Concomitant]
     Active Substance: URSODIOL
     Indication: PRODUCT USED FOR UNKNOWN INDICATION
     Dosage: 1350 MG, DAILY DOSE
     Route: 065
  5. MAGNESIUM OXIDE. [Concomitant]
     Active Substance: MAGNESIUM OXIDE
     Indication: PRODUCT USED FOR UNKNOWN INDICATION
     Dosage: 750 MG, DAILY DOSE
     Route: 065
  6. DEXART [Concomitant]
     Active Substance: DEXAMETHASONE SODIUM PHOSPHATE
     Indication: PRODUCT USED FOR UNKNOWN INDICATION
     Dosage: 9.9 MG, DAILY DOSE
     Route: 065
  7. ONDANSETRON [Concomitant]
     Active Substance: ONDANSETRON
     Indication: PRODUCT USED FOR UNKNOWN INDICATION
     Dosage: 8 MG, DAILY DOSE
     Route: 065
  8. DEXAMETHASONE. [Concomitant]
     Active Substance: DEXAMETHASONE
     Indication: SYSTEMIC INFLAMMATORY RESPONSE SYNDROME
  9. URSODEOXYCHOLIC ACID [Concomitant]
     Active Substance: URSODIOL
     Indication: VENOOCCLUSIVE LIVER DISEASE
  10. BUSULFEX [Suspect]
     Active Substance: BUSULFAN
     Indication: STEM CELL TRANSPLANT
     Dosage: 1.6 MG/KG, QD (ONCE DAILY OVER 3 H ON 4 CONSECUTIVE DAYS)
     Route: 041
  11. DALTEPARIN SODIUM [Concomitant]
     Active Substance: DALTEPARIN SODIUM
     Indication: PRODUCT USED FOR UNKNOWN INDICATION
     Dosage: 300 IU, DAILY DOSE
     Route: 065
  12. DEXAMETHASONE. [Concomitant]
     Active Substance: DEXAMETHASONE
     Indication: PETECHIAE
     Dosage: 5 MG/M2, UNK
     Route: 065
  13. FUNGUARD [Concomitant]
     Active Substance: MICAFUNGIN SODIUM
     Indication: PRODUCT USED FOR UNKNOWN INDICATION
     Dosage: 50 MG, DAILY DOSE
     Route: 065

REACTIONS (7)
  - Gastroenteritis adenovirus [Recovered/Resolved]
  - Febrile neutropenia [Unknown]
  - Cytomegalovirus viraemia [Recovered/Resolved]
  - Hypertension [Unknown]
  - Stomatitis [Unknown]
  - Diarrhoea [Unknown]
  - Alanine aminotransferase increased [Unknown]
